FAERS Safety Report 16365689 (Version 16)
Quarter: 2020Q4

REPORT INFORMATION
  Report Type: Spontaneous
  Country: IE (occurrence: IE)
  Receive Date: 20190529
  Receipt Date: 20201005
  Transmission Date: 20210113
  Serious: Yes (Hospitalization, Other)
  Sender: FDA-Public Use
  Company Number: IE-MYLANLABS-2019M1050199

PATIENT
  Age: 51 Year
  Sex: Male

DRUGS (4)
  1. CLOZARIL [Suspect]
     Active Substance: CLOZAPINE
     Dosage: UNK
     Route: 048
  2. RITUXIMAB. [Suspect]
     Active Substance: RITUXIMAB
     Indication: PRODUCT USED FOR UNKNOWN INDICATION
     Dosage: UNK
     Route: 065
  3. CLOZARIL [Suspect]
     Active Substance: CLOZAPINE
     Indication: SCHIZOPHRENIA
     Dosage: UNK
     Route: 048
     Dates: start: 20040813, end: 2019
  4. CLOZARIL [Suspect]
     Active Substance: CLOZAPINE
     Dosage: UNK
     Route: 048
     Dates: end: 20200228

REACTIONS (12)
  - Lower respiratory tract infection [Unknown]
  - Eosinophil count decreased [Recovered/Resolved]
  - Neutrophil count increased [Recovered/Resolved]
  - Hospitalisation [Recovered/Resolved]
  - Thrombocytopenia [Not Recovered/Not Resolved]
  - Agranulocytosis [Recovered/Resolved]
  - Differential white blood cell count abnormal [Unknown]
  - Contraindicated product administered [Unknown]
  - Lymphoma [Unknown]
  - Leukopenia [Recovering/Resolving]
  - Neutrophil count decreased [Recovered/Resolved]
  - Haemoglobin decreased [Recovering/Resolving]

NARRATIVE: CASE EVENT DATE: 20190423
